FAERS Safety Report 13390190 (Version 2)
Quarter: 2017Q2

REPORT INFORMATION
  Report Type: Report from Study
  Country: US (occurrence: US)
  Receive Date: 20170331
  Receipt Date: 20170607
  Transmission Date: 20170830
  Serious: No
  Sender: FDA-Public Use
  Company Number: US-AMGEN-USASL2017046191

PATIENT
  Age: 50 Year
  Sex: Female

DRUGS (2)
  1. TURMERIC [Concomitant]
     Active Substance: HERBALS\TURMERIC
     Dosage: UNK
  2. ENBREL [Suspect]
     Active Substance: ETANERCEPT
     Indication: RHEUMATOID ARTHRITIS
     Dosage: 50 MG, QWK
     Route: 065

REACTIONS (9)
  - Sinusitis [Unknown]
  - Nausea [Recovering/Resolving]
  - Injection site erythema [Recovering/Resolving]
  - Arthralgia [Unknown]
  - Headache [Unknown]
  - Injection site swelling [Recovering/Resolving]
  - Eye pain [Not Recovered/Not Resolved]
  - Facial pain [Not Recovered/Not Resolved]
  - Photophobia [Recovering/Resolving]
